FAERS Safety Report 23701372 (Version 1)
Quarter: 2024Q2

REPORT INFORMATION
  Report Type: Report from Study
  Country: US (occurrence: None)
  Receive Date: 20240403
  Receipt Date: 20240403
  Transmission Date: 20240716
  Serious: Yes (Life-Threatening)
  Sender: FDA-Public Use
  Company Number: 2023A193283

PATIENT
  Sex: Female

DRUGS (1)
  1. BYDUREON BCISE [Suspect]
     Active Substance: EXENATIDE

REACTIONS (5)
  - Illness [Unknown]
  - Gastrointestinal disorder [Unknown]
  - Blood glucose decreased [Unknown]
  - Product distribution issue [Unknown]
  - Product dose omission issue [Unknown]
